FAERS Safety Report 6681750-3 (Version None)
Quarter: 2010Q2

REPORT INFORMATION
  Report Type: 
  Country: None (occurrence: None)
  Receive Date: 20100414
  Receipt Date: 20100406
  Transmission Date: 20101027
  Serious: Yes (Hospitalization)
  Sender: FDA-Public Use
  Company Number: US-WATSON-2010-04545

PATIENT
  Age: 17 Year
  Sex: Male

DRUGS (5)
  1. LORAZEPAM [Suspect]
     Indication: ANXIETY
     Dosage: 1 TABLET, TID PRN
     Route: 048
     Dates: start: 20100306
  2. LORAZEPAM [Suspect]
     Dosage: 1 TABLET, TID PRN
     Route: 048
     Dates: start: 20100306
  3. PROZAC [Concomitant]
     Indication: DEPRESSION
     Dosage: 40 MG, UNKNOWN
     Route: 065
     Dates: start: 20100306, end: 20100402
  4. ABILIFY [Concomitant]
     Indication: DEPRESSION
     Dosage: UNKNOWN
     Route: 065
     Dates: end: 20100330
  5. TOPAMAX [Concomitant]
     Indication: AFFECTIVE DISORDER
     Dosage: UNKNOWN
     Route: 065
     Dates: start: 20100331

REACTIONS (3)
  - DRUG INEFFECTIVE [None]
  - DRUG SCREEN NEGATIVE [None]
  - SUICIDAL IDEATION [None]
